FAERS Safety Report 16633938 (Version 2)
Quarter: 2019Q4

REPORT INFORMATION
  Report Type: Spontaneous
  Country: US (occurrence: US)
  Receive Date: 20190725
  Receipt Date: 20191023
  Transmission Date: 20200122
  Serious: No
  Sender: FDA-Public Use
  Company Number: US-DERMIRA, INC.-US-2019DER000290

PATIENT
  Sex: Female

DRUGS (3)
  1. QBREXZA [Suspect]
     Active Substance: GLYCOPYRRONIUM TOSYLATE
     Indication: HYPERHIDROSIS
     Dosage: UNK, QD
     Route: 061
     Dates: start: 20190328
  2. QBREXZA [Suspect]
     Active Substance: GLYCOPYRRONIUM TOSYLATE
     Dosage: UNK, BID
     Route: 061
     Dates: start: 2019
  3. QBREXZA [Suspect]
     Active Substance: GLYCOPYRRONIUM TOSYLATE
     Dosage: UNK, QD
     Route: 061
     Dates: start: 2019

REACTIONS (5)
  - Therapeutic product effect decreased [Unknown]
  - Dry mouth [Unknown]
  - Intentional product misuse [Unknown]
  - Vision blurred [Recovered/Resolved]
  - Wrong technique in product usage process [Recovered/Resolved]

NARRATIVE: CASE EVENT DATE: 2019
